FAERS Safety Report 8000738-3 (Version None)
Quarter: 2011Q4

REPORT INFORMATION
  Report Type: 
  Country: None (occurrence: None)
  Receive Date: 20111222
  Receipt Date: 20111216
  Transmission Date: 20120403
  Serious: Yes (Hospitalization)
  Sender: FDA-Public Use
  Company Number: AU-BRISTOL-MYERS SQUIBB COMPANY-15128309

PATIENT
  Age: 63 Year
  Sex: Male
  Weight: 89 kg

DRUGS (2)
  1. CISPLATIN [Suspect]
     Indication: GASTROOESOPHAGEAL CANCER
     Dosage: ON DAY 1 OF CYCLE.MOST RECENT INF ON 19MAY2010 NO OF INF:3
     Route: 042
     Dates: start: 20100331
  2. XELODA [Suspect]
     Indication: GASTROOESOPHAGEAL CANCER
     Dosage: TABS:ON DAY 1 TO 15.MOST RECENT INF ON 24MAY2010 UNK:31MAR10,1000MG/M2:19MAY10,750MG/M2:ONG
     Route: 048
     Dates: start: 20100331

REACTIONS (1)
  - HYPERGLYCAEMIA [None]
